FAERS Safety Report 7868091-3 (Version None)
Quarter: 2011Q4

REPORT INFORMATION
  Report Type: 
  Country: None (occurrence: None)
  Receive Date: 20111028
  Receipt Date: 20111025
  Transmission Date: 20120403
  Serious: Yes (Other)
  Sender: FDA-Public Use
  Company Number: US-PFIZER INC-2011260115

PATIENT
  Sex: Female
  Weight: 45.351 kg

DRUGS (3)
  1. MONUROL [Suspect]
     Indication: URINARY TRACT INFECTION
     Dosage: UNK
     Dates: start: 20111020, end: 20111020
  2. LEXAPRO [Concomitant]
     Dosage: UNK
     Dates: start: 20110101
  3. SEPTRA [Suspect]
     Dosage: UNK
     Dates: end: 20111001

REACTIONS (3)
  - URINARY TRACT INFECTION [None]
  - TREMOR [None]
  - FEELING ABNORMAL [None]
